FAERS Safety Report 24999991 (Version 1)
Quarter: 2025Q1

REPORT INFORMATION
  Report Type: Spontaneous
  Country: US (occurrence: US)
  Receive Date: 20250222
  Receipt Date: 20250222
  Transmission Date: 20250409
  Serious: No
  Sender: SANOFI AVENTIS
  Company Number: US-SA-2025SA049138

PATIENT
  Sex: Female

DRUGS (12)
  1. DUPIXENT [Suspect]
     Active Substance: DUPILUMAB
     Indication: Dermatitis atopic
     Dosage: 300 MG, QOW
     Route: 058
  2. GABAPENTIN [Concomitant]
     Active Substance: GABAPENTIN
  3. MELATONIN [Concomitant]
     Active Substance: MELATONIN
  4. TRAZODONE HCL [Concomitant]
     Active Substance: TRAZODONE HYDROCHLORIDE
  5. PATADAY [Concomitant]
     Active Substance: OLOPATADINE HYDROCHLORIDE
  6. LANTUS [Concomitant]
     Active Substance: INSULIN GLARGINE
  7. ALBUTEROL SULFATE [Concomitant]
     Active Substance: ALBUTEROL SULFATE
  8. CLOPIDOGREL [Concomitant]
     Active Substance: CLOPIDOGREL BISULFATE
  9. HYDRALAZINE [Concomitant]
     Active Substance: HYDRALAZINE HYDROCHLORIDE
  10. KETOCONAZOLE [Concomitant]
     Active Substance: KETOCONAZOLE
  11. METFORMIN HYDROCHLORIDE [Concomitant]
     Active Substance: METFORMIN HYDROCHLORIDE
  12. NOVOLIN N [Concomitant]
     Active Substance: INSULIN HUMAN

REACTIONS (1)
  - Rash [Unknown]
